FAERS Safety Report 17352236 (Version 1)
Quarter: 2020Q1

REPORT INFORMATION
  Report Type: Report from Study
  Country: CA (occurrence: CA)
  Receive Date: 20200130
  Receipt Date: 20200130
  Transmission Date: 20200409
  Serious: Yes (Other)
  Sender: FDA-Public Use
  Company Number: CA-HLSUS-2020-CA-000094

PATIENT
  Sex: Male

DRUGS (1)
  1. CLOZARIL [Suspect]
     Active Substance: CLOZAPINE
     Route: 048
     Dates: end: 20200123

REACTIONS (4)
  - Hypotension [Unknown]
  - Heart rate decreased [Unknown]
  - Fatigue [Unknown]
  - Somnolence [Unknown]
